FAERS Safety Report 6686978-4 (Version None)
Quarter: 2010Q2

REPORT INFORMATION
  Report Type: 
  Country: None (occurrence: None)
  Receive Date: 20100419
  Receipt Date: 20100409
  Transmission Date: 20101027
  Serious: Yes (Death, Other)
  Sender: FDA-Public Use
  Company Number: US-PFIZER INC-2010045794

PATIENT
  Sex: Male

DRUGS (1)
  1. CHANTIX [Suspect]
     Indication: SMOKING CESSATION THERAPY
     Dosage: UNK
     Dates: start: 20090415

REACTIONS (8)
  - AGGRESSION [None]
  - ANXIETY [None]
  - BALANCE DISORDER [None]
  - COMPLETED SUICIDE [None]
  - DEPRESSION [None]
  - IRRITABILITY [None]
  - MOOD SWINGS [None]
  - SLEEP DISORDER [None]
